FAERS Safety Report 13724620 (Version 1)
Quarter: 2017Q3

REPORT INFORMATION
  Report Type: Spontaneous
  Country: ES (occurrence: ES)
  Receive Date: 20170706
  Receipt Date: 20170706
  Transmission Date: 20171127
  Serious: Yes (Other)
  Sender: FDA-Public Use
  Company Number: ES-PFIZER INC-2017289853

PATIENT
  Age: 51 Year
  Sex: Male

DRUGS (1)
  1. CARDYL [Suspect]
     Active Substance: ATORVASTATIN CALCIUM
     Indication: DYSLIPIDAEMIA
     Dosage: 10 MG 1X/DAY
     Route: 048
     Dates: start: 2007, end: 20100107

REACTIONS (2)
  - Immune-mediated necrotising myopathy [Recovered/Resolved]
  - Hepatic enzyme increased [Unknown]

NARRATIVE: CASE EVENT DATE: 20091126
